FAERS Safety Report 11031004 (Version 1)
Quarter: 2015Q2

REPORT INFORMATION
  Report Type: Spontaneous
  Country: US (occurrence: None)
  Receive Date: 20150414
  Receipt Date: 20150414
  Transmission Date: 20150821
  Serious: No
  Sender: FDA-Public Use
  Company Number: None

PATIENT
  Age: 54 Year
  Sex: Male
  Weight: 109.32 kg

DRUGS (1)
  1. BELSOMRA [Suspect]
     Active Substance: SUVOREXANT
     Indication: INSOMNIA
     Dosage: 20MG, T PO @1030 PM, PO
     Route: 048
     Dates: start: 20150315, end: 20150327

REACTIONS (1)
  - Abdominal distension [None]

NARRATIVE: CASE EVENT DATE: 20150321
